FAERS Safety Report 16808002 (Version 2)
Quarter: 2019Q3

REPORT INFORMATION
  Report Type: Spontaneous
  Country: FR (occurrence: FR)
  Receive Date: 20190916
  Receipt Date: 20190925
  Transmission Date: 20191005
  Serious: Yes (Life-Threatening, Hospitalization)
  Sender: FDA-Public Use
  Company Number: FR-B.I. PHARMACEUTICALS,INC./RIDGEFIELD-2019-BI-102189

PATIENT
  Age: 78 Year
  Sex: Male

DRUGS (1)
  1. PRADAXA [Suspect]
     Active Substance: DABIGATRAN ETEXILATE MESYLATE
     Indication: ATRIAL FIBRILLATION
     Route: 048
     Dates: end: 20190909

REACTIONS (5)
  - Cardiac failure [Unknown]
  - Hypovolaemic shock [Unknown]
  - Abscess neck [Unknown]
  - Renal failure [Unknown]
  - Staphylococcal abscess [Unknown]

NARRATIVE: CASE EVENT DATE: 201909
